FAERS Safety Report 17269738 (Version 1)
Quarter: 2020Q1

REPORT INFORMATION
  Report Type: Spontaneous
  Country: US (occurrence: US)
  Receive Date: 20200114
  Receipt Date: 20200114
  Transmission Date: 20200409
  Serious: Yes (Other)
  Sender: FDA-Public Use
  Company Number: US-FRESENIUS KABI-FK202000359

PATIENT
  Age: 71 Year
  Sex: Male

DRUGS (7)
  1. AMIODARONE [Concomitant]
     Active Substance: AMIODARONE
     Indication: ATRIAL FIBRILLATION
     Dosage: UNKNOWN
     Route: 065
  2. HALOPERIDOL. [Concomitant]
     Active Substance: HALOPERIDOL
     Indication: DYSPNOEA
  3. DILTIAZEM. [Concomitant]
     Active Substance: DILTIAZEM
     Indication: ATRIAL FIBRILLATION
     Dosage: UNKNOWN
     Route: 065
  4. HALOPERIDOL. [Concomitant]
     Active Substance: HALOPERIDOL
     Indication: AGITATION
     Dosage: UNKNOWN
     Route: 065
  5. FENTANYL. [Concomitant]
     Active Substance: FENTANYL
     Indication: PRODUCT USED FOR UNKNOWN INDICATION
     Dosage: UNKNOWN
  6. DEXMEDETOMIDINE (MANUFACTURER UNKNOWN) [Suspect]
     Active Substance: DEXMEDETOMIDINE
     Indication: SEDATIVE THERAPY
     Dosage: HIGH DOSES
     Route: 065
  7. NO DRUG NAME [Concomitant]
     Active Substance: UNSPECIFIED INGREDIENT
     Indication: PRODUCT USED FOR UNKNOWN INDICATION
     Dosage: UNKNOWN
     Route: 065

REACTIONS (1)
  - Cardiac failure acute [Recovering/Resolving]
